FAERS Safety Report 8770924 (Version 1)
Quarter: 2012Q4

REPORT INFORMATION
  Report Type: 
  Country: DK (occurrence: JP)
  Receive Date: 20120906
  Receipt Date: 20120906
  Transmission Date: 20130627
  Serious: Yes (Other)
  Sender: FDA-Public Use
  Company Number: JP-SHIRE-ALL1-2012-04157

PATIENT
  Age: 76 Year
  Sex: Female

DRUGS (7)
  1. 426 (MIDODRINE) [Suspect]
     Indication: ORTHOSTATIC HYPOTENSION
     Dosage: 2 mg, 2x/day:bid
     Route: 048
     Dates: start: 201003
  2. FOSAMAC [Suspect]
     Indication: OSTEOPOROSIS
     Dosage: 35 mg, 1x/week
     Route: 048
     Dates: start: 201003
  3. CRESTOR [Concomitant]
     Indication: PRODUCT USED FOR UNKNOWN INDICATION
     Dosage: 2.5 mg, Unknown
     Route: 048
     Dates: start: 201003
  4. MENESIT [Concomitant]
     Indication: PRODUCT USED FOR UNKNOWN INDICATION
     Dosage: 100 mg, 3x/day:tid
     Route: 048
     Dates: start: 201003
  5. ASPARA POTASSIUM [Concomitant]
     Indication: PRODUCT USED FOR UNKNOWN INDICATION
     Dosage: 1 g, Unknown
     Route: 048
     Dates: start: 201003
  6. MAGMITT [Concomitant]
     Indication: PRODUCT USED FOR UNKNOWN INDICATION
     Dosage: 330 mg, 3x/day:tid
     Route: 048
     Dates: start: 201003
  7. RACOL [Concomitant]
     Indication: PRODUCT USED FOR UNKNOWN INDICATION
     Dosage: UNK UNK, Unknown
     Route: 065
     Dates: start: 201203

REACTIONS (1)
  - Calculus urinary [Not Recovered/Not Resolved]
